FAERS Safety Report 19795000 (Version 1)
Quarter: 2021Q3

REPORT INFORMATION
  Report Type: Spontaneous
  Country: US (occurrence: US)
  Receive Date: 20210907
  Receipt Date: 20210907
  Transmission Date: 20211014
  Serious: No
  Sender: FDA-Public Use
  Company Number: US-APOTEX-2021AP039111

PATIENT
  Age: 74 Year
  Sex: Male

DRUGS (1)
  1. IMATINIB. [Suspect]
     Active Substance: IMATINIB MESYLATE
     Indication: CHRONIC MYELOID LEUKAEMIA
     Dosage: 400 MILLIGRAM
     Route: 065

REACTIONS (3)
  - Nausea [Unknown]
  - Diarrhoea [Unknown]
  - Vomiting [Unknown]
